FAERS Safety Report 6814926 (Version 2)
Quarter: 2020Q3

REPORT INFORMATION
  Report Type: Report from Study
  Country: IN (occurrence: IN)
  Receive Date: 20081118
  Receipt Date: 20081201
  Transmission Date: 20201104
  Serious: Yes (Death, Hospitalization)
  Sender: FDA-Public Use
  Company Number: IN-WYE-H06629308

PATIENT
  Age: 71 Year
  Sex: Male
  Weight: 45 kg

DRUGS (4)
  1. AVASTIN [Suspect]
     Active Substance: BEVACIZUMAB
     Indication: RENAL CELL CARCINOMA
     Route: 042
     Dates: start: 20080930, end: 20081014
  2. AVASTIN [Suspect]
     Active Substance: BEVACIZUMAB
     Route: 042
     Dates: start: 20081030
  3. ROFERON?A [Suspect]
     Active Substance: INTERFERON ALFA-2A
     Indication: RENAL CELL CARCINOMA
     Route: 058
     Dates: start: 20080930, end: 20081010
  4. ROFERON?A [Suspect]
     Active Substance: INTERFERON ALFA-2A
     Route: 058
     Dates: start: 20081029

REACTIONS (2)
  - Anaemia [Recovered/Resolved]
  - Thrombocytopenia [Recovered/Resolved]

NARRATIVE: CASE EVENT DATE: 20081028
